FAERS Safety Report 13836594 (Version 1)
Quarter: 2017Q3

REPORT INFORMATION
  Report Type: Spontaneous
  Country: FR (occurrence: FR)
  Receive Date: 20170804
  Receipt Date: 20170804
  Transmission Date: 20171127
  Serious: Yes (Other)
  Sender: FDA-Public Use
  Company Number: FR-ABBVIE-17P-056-2062512-00

PATIENT
  Age: 21 Year
  Sex: Female

DRUGS (2)
  1. DEPAKINE CHRONO [Suspect]
     Active Substance: VALPROATE SODIUM
     Indication: EPILEPSY
     Route: 065
  2. SPECIAFOLDINE [Concomitant]
     Active Substance: FOLIC ACID
     Indication: PRODUCT USED FOR UNKNOWN INDICATION
     Dates: start: 20000306

REACTIONS (6)
  - Fibrinolysis [Unknown]
  - Retroplacental haematoma [Unknown]
  - Exposure during pregnancy [Unknown]
  - Stillbirth [Unknown]
  - Premature labour [Unknown]
  - Premature delivery [Unknown]
